FAERS Safety Report 13440448 (Version 1)
Quarter: 2017Q2

REPORT INFORMATION
  Report Type: Report from Study
  Country: None (occurrence: BR)
  Receive Date: 20170413
  Receipt Date: 20170413
  Transmission Date: 20170830
  Serious: Yes (Other)
  Sender: FDA-Public Use
  Company Number: BR-ABBVIE-17K-020-1939425-00

PATIENT
  Age: 69 Year
  Sex: Male
  Weight: 58 kg

DRUGS (3)
  1. HUMIRA [Suspect]
     Active Substance: ADALIMUMAB
     Indication: PSORIATIC ARTHROPATHY
     Route: 058
     Dates: start: 20160728
  2. METHOTREXATE. [Concomitant]
     Active Substance: METHOTREXATE
     Indication: PRODUCT USED FOR UNKNOWN INDICATION
     Route: 048
  3. GLUCOSAMINE [Concomitant]
     Active Substance: GLUCOSAMINE
     Indication: BONE DISORDER
     Route: 048

REACTIONS (10)
  - Fatigue [Not Recovered/Not Resolved]
  - Head injury [Recovering/Resolving]
  - Throat irritation [Recovered/Resolved]
  - Hepatic steatosis [Not Recovered/Not Resolved]
  - Radioactive iodine therapy [Recovered/Resolved]
  - Fall [Recovering/Resolving]
  - Pain [Not Recovered/Not Resolved]
  - Decreased appetite [Not Recovered/Not Resolved]
  - Pollakiuria [Not Recovered/Not Resolved]
  - Weight decreased [Recovering/Resolving]

NARRATIVE: CASE EVENT DATE: 201610
